FAERS Safety Report 6546205-5 (Version None)
Quarter: 2010Q1

REPORT INFORMATION
  Report Type: 
  Country: None (occurrence: None)
  Receive Date: 20100119
  Receipt Date: 20100107
  Transmission Date: 20100710
  Serious: Yes (Other)
  Sender: FDA-Public Use
  Company Number: PAR_03309_2010

PATIENT
  Age: 12 Year
  Sex: Male
  Weight: 28.5766 kg

DRUGS (7)
  1. CLONAZEPAM [Suspect]
     Indication: GRAND MAL CONVULSION
     Dosage: (0.25 MG QD, NIGHTLY ORAL)
     Route: 048
     Dates: start: 20090101
  2. KLONOPIN [Suspect]
     Indication: GRAND MAL CONVULSION
     Dosage: (0.5 MG QD, NIGHTLY ORAL), (0.5 MG QD, NIGHTLY ORAL)
     Route: 048
     Dates: start: 20080101
  3. KLONOPIN [Suspect]
     Indication: GRAND MAL CONVULSION
     Dosage: (0.5 MG QD, NIGHTLY ORAL), (0.5 MG QD, NIGHTLY ORAL)
     Route: 048
     Dates: start: 20090801
  4. DILANTIN [Concomitant]
  5. NEXIUM [Concomitant]
  6. SYNTHROID [Concomitant]
  7. PENTASA [Concomitant]

REACTIONS (6)
  - CONDITION AGGRAVATED [None]
  - CONVULSION [None]
  - GASTROOESOPHAGEAL REFLUX DISEASE [None]
  - INCORRECT DOSE ADMINISTERED [None]
  - PAIN [None]
  - PRODUCT SUBSTITUTION ISSUE [None]
